FAERS Safety Report 13542167 (Version 1)
Quarter: 2017Q2

REPORT INFORMATION
  Report Type: Spontaneous
  Country: US (occurrence: US)
  Receive Date: 20170512
  Receipt Date: 20170512
  Transmission Date: 20170830
  Serious: No
  Sender: FDA-Public Use
  Company Number: US-ROCHE-1042717

PATIENT
  Age: 72 Year
  Sex: Female
  Weight: 49.94 kg

DRUGS (1)
  1. AVASTIN [Suspect]
     Active Substance: BEVACIZUMAB
     Indication: RETINAL VEIN OCCLUSION
     Dosage: RECEIVED MONTLY IN SEP/2011, OCT/2011, 22/DEC/2011 AND 20/JAN/2011
     Route: 050
     Dates: start: 20110824

REACTIONS (1)
  - Pneumonia [Recovered/Resolved]

NARRATIVE: CASE EVENT DATE: 20111213
